FAERS Safety Report 12243184 (Version 1)
Quarter: 2016Q2

REPORT INFORMATION
  Report Type: Spontaneous
  Country: US (occurrence: US)
  Receive Date: 20160406
  Receipt Date: 20160406
  Transmission Date: 20160815
  Serious: No
  Sender: FDA-Public Use
  Company Number: US-SA-2015SA044648

PATIENT
  Age: 58 Year
  Sex: Male

DRUGS (4)
  1. ALLEGRA-D [Suspect]
     Active Substance: FEXOFENADINE\PSEUDOEPHEDRINE
     Indication: RHINORRHOEA
     Dosage: PRODUCT START DATE:2 YEARS AGO
     Route: 048
  2. NASONEX [Concomitant]
     Active Substance: MOMETASONE FUROATE
     Route: 065
  3. ALLEGRA-D [Suspect]
     Active Substance: FEXOFENADINE\PSEUDOEPHEDRINE
     Indication: PARANASAL SINUS HYPERSECRETION
     Dosage: PRODUCT START DATE:2 YEARS AGO
     Route: 048
  4. ALLEGRA-D [Suspect]
     Active Substance: FEXOFENADINE\PSEUDOEPHEDRINE
     Indication: HYPERSENSITIVITY
     Dosage: PRODUCT START DATE:2 YEARS AGO
     Route: 048

REACTIONS (2)
  - Therapeutic response decreased [Unknown]
  - Medication residue present [Unknown]
